FAERS Safety Report 10216897 (Version 1)
Quarter: 2014Q2

REPORT INFORMATION
  Report Type: Spontaneous
  Country: DE (occurrence: DE)
  Receive Date: 20140604
  Receipt Date: 20140604
  Transmission Date: 20141212
  Serious: Yes (Hospitalization)
  Sender: FDA-Public Use
  Company Number: DE-BRISTOL-MYERS SQUIBB COMPANY-20881421

PATIENT
  Sex: Female

DRUGS (3)
  1. ABILIFY [Suspect]
  2. LAMOTRIGINE [Concomitant]
  3. VALPROIC ACID [Concomitant]

REACTIONS (1)
  - Gastroenteritis [Unknown]
